FAERS Safety Report 22119202 (Version 1)
Quarter: 2023Q1

REPORT INFORMATION
  Report Type: Spontaneous
  Country: US (occurrence: None)
  Receive Date: 20230320
  Receipt Date: 20230320
  Transmission Date: 20230417
  Serious: Yes (Hospitalization)
  Sender: FDA-Public Use
  Company Number: None

PATIENT
  Age: 31 Year
  Sex: Male
  Weight: 54 kg

DRUGS (1)
  1. HERBALS\MITRAGYNINE [Suspect]
     Active Substance: HERBALS\MITRAGYNINE
     Indication: Anxiety
     Dosage: OTHER QUANTITY : 1 LIQUID;?FREQUENCY : 4 TIMES A DAY;?
     Route: 048
     Dates: start: 20220601, end: 20230220

REACTIONS (8)
  - Dyspepsia [None]
  - Restless legs syndrome [None]
  - Skin disorder [None]
  - Aggression [None]
  - Anxiety [None]
  - Asthenia [None]
  - Disturbance in attention [None]
  - Dependence [None]

NARRATIVE: CASE EVENT DATE: 20221031
